FAERS Safety Report 21751209 (Version 4)
Quarter: 2023Q2

REPORT INFORMATION
  Report Type: Report from Study
  Country: CN (occurrence: CN)
  Receive Date: 20221220
  Receipt Date: 20230524
  Transmission Date: 20230722
  Serious: Yes (Hospitalization)
  Sender: FDA-Public Use
  Company Number: CN-ABBVIE-4195216

PATIENT
  Age: 59 Year
  Sex: Female
  Weight: 47 kg

DRUGS (3)
  1. HUMIRA [Suspect]
     Active Substance: ADALIMUMAB
     Indication: Crohn^s disease
     Dosage: 80 MILLIGRAM
     Route: 058
     Dates: start: 20221022, end: 20221117
  2. HUMIRA [Suspect]
     Active Substance: ADALIMUMAB
     Dosage: 160 MILLIGRAM
     Route: 058
     Dates: start: 20221021, end: 20221021
  3. LIDOCAINE HYDROCHLORIDE [Concomitant]
     Active Substance: LIDOCAINE HYDROCHLORIDE
     Indication: Endoscopy upper gastrointestinal tract
     Dosage: 10 MILLIGRAM?ONCE
     Route: 042
     Dates: start: 20230119, end: 20230119

REACTIONS (5)
  - Duodenal ulcer [Not Recovered/Not Resolved]
  - Pepsinogen test positive [Recovering/Resolving]
  - Pepsinogen I decreased [Recovering/Resolving]
  - Blood gastrin decreased [Recovering/Resolving]
  - Hepatic function abnormal [Recovering/Resolving]

NARRATIVE: CASE EVENT DATE: 20221026
